FAERS Safety Report 6971135 (Version 2)
Quarter: 2014Q3

REPORT INFORMATION
  Report Type: Spontaneous
  Country: FR (occurrence: FR)
  Receive Date: 20081219
  Receipt Date: 20140820
  Transmission Date: 20150326
  Serious: Yes (Hospitalization)
  Sender: FDA-Public Use
  Company Number: FR-BRISTOL-MYERS SQUIBB COMPANY-14444228

PATIENT
  Age: 3 Year
  Sex: Female

DRUGS (11)
  1. HEXOMEDINE [Suspect]
     Active Substance: HEXAMIDINE DIISETHIONATE
     Indication: VIRAL INFECTION
  2. AMOXICILLIN. [Suspect]
     Active Substance: AMOXICILLIN
     Indication: APLASIA
     Dates: start: 20080612, end: 20080617
  3. FORTUM [Suspect]
     Active Substance: CEFTAZIDIME
     Indication: VIRAL INFECTION
  4. OFLOCET [Suspect]
     Active Substance: OFLOXACIN
     Indication: VIRAL INFECTION
  5. AMIKACIN SULFATE. [Suspect]
     Active Substance: AMIKACIN SULFATE
     Indication: VIRAL INFECTION
  6. NALBUPHINE HCL [Suspect]
     Active Substance: NALBUPHINE HYDROCHLORIDE
     Indication: VIRAL INFECTION
  7. FUCIDINE [Suspect]
     Active Substance: FUSIDIC ACID
     Indication: VIRAL INFECTION
  8. EFFERALGAN [Suspect]
     Active Substance: ACETAMINOPHEN
     Indication: VIRAL INFECTION
     Dates: start: 20080612, end: 20080617
  9. ROCEPHINE [Suspect]
     Active Substance: CEFTRIAXONE SODIUM
     Indication: VIRAL INFECTION
  10. ATARAX [Suspect]
     Active Substance: HYDROXYZINE\HYDROXYZINE HYDROCHLORIDE
     Indication: VIRAL INFECTION
  11. VANCOMYCIN [Suspect]
     Active Substance: VANCOMYCIN
     Indication: VIRAL INFECTION

REACTIONS (1)
  - Toxic epidermal necrolysis [Recovered/Resolved with Sequelae]

NARRATIVE: CASE EVENT DATE: 20080617
